FAERS Safety Report 5381621-9 (Version None)
Quarter: 2007Q2

REPORT INFORMATION
  Report Type: 
  Country: None (occurrence: None)
  Receive Date: 20070629
  Receipt Date: 20060725
  Transmission Date: 20071010
  Serious: Yes (Other)
  Sender: FDA-Public Use
  Company Number: 2006091796

PATIENT
  Age: 10 Year
  Sex: Male

DRUGS (2)
  1. ZOLOFT [Suspect]
     Indication: ANXIETY
     Dosage: 50 MG (50 MG, QD: EVERY DAY)
     Dates: start: 20060615, end: 20060725
  2. ZOLOFT [Suspect]
     Indication: OBSESSIVE-COMPULSIVE DISORDER
     Dosage: 50 MG (50 MG, QD: EVERY DAY)
     Dates: start: 20060615, end: 20060725

REACTIONS (2)
  - CONTUSION [None]
  - PLATELET COUNT DECREASED [None]
